FAERS Safety Report 16535922 (Version 3)
Quarter: 2019Q3

REPORT INFORMATION
  Report Type: Report from Study
  Country: US (occurrence: US)
  Receive Date: 20190705
  Receipt Date: 20190814
  Transmission Date: 20191004
  Serious: Yes (Death, Life-Threatening, Other)
  Sender: FDA-Public Use
  Company Number: PHHY2019US152083

PATIENT
  Age: 15 Year
  Sex: Male

DRUGS (3)
  1. FLUDARABINE [Concomitant]
     Active Substance: FLUDARABINE PHOSPHATE
     Indication: CHEMOTHERAPY
     Dosage: UNK
     Route: 065
  2. KYMRIAH [Suspect]
     Active Substance: TISAGENLECLEUCEL
     Indication: DIFFUSE LARGE B-CELL LYMPHOMA
     Dosage: UNK, ONCE/SINGLE
     Route: 041
     Dates: start: 2018
  3. CYCLOPHOSPHAMIDE. [Concomitant]
     Active Substance: CYCLOPHOSPHAMIDE
     Indication: CHEMOTHERAPY
     Dosage: UNK
     Route: 065

REACTIONS (18)
  - Depressed level of consciousness [Unknown]
  - Platelet count decreased [Recovering/Resolving]
  - Haemoglobin decreased [Recovering/Resolving]
  - Neutrophil count decreased [Unknown]
  - Malignant neoplasm progression [Fatal]
  - Enterococcal infection [Unknown]
  - Clostridium difficile infection [Unknown]
  - Lymphocyte count decreased [Unknown]
  - Candida infection [Unknown]
  - Pulmonary toxicity [Unknown]
  - Pseudomonas infection [Unknown]
  - Diffuse large B-cell lymphoma [Fatal]
  - Neurotoxicity [Recovered/Resolved]
  - Klebsiella infection [Unknown]
  - Generalised tonic-clonic seizure [Unknown]
  - Staphylococcal infection [Unknown]
  - Haematocrit decreased [Unknown]
  - White blood cell count decreased [Unknown]
